FAERS Safety Report 8185982-7 (Version None)
Quarter: 2012Q1

REPORT INFORMATION
  Report Type: 
  Country: None (occurrence: None)
  Receive Date: 20120305
  Receipt Date: 20120301
  Transmission Date: 20120608
  Serious: Yes (Hospitalization)
  Sender: FDA-Public Use
  Company Number: JP-BRISTOL-MYERS SQUIBB COMPANY-15474166

PATIENT
  Age: 52 Year
  Sex: Male
  Weight: 68 kg

DRUGS (6)
  1. OMEPRAZOLE [Concomitant]
     Indication: GASTRITIS
     Dosage: TAB RESTARTED:1NOV09
     Route: 048
     Dates: start: 20031127, end: 20101031
  2. ASPIRIN [Concomitant]
     Indication: CARDIOVASCULAR DISORDER
     Dosage: TAB
     Route: 048
     Dates: start: 20020718, end: 20101031
  3. BARACLUDE [Suspect]
     Indication: HEPATITIS B
     Route: 048
     Dates: start: 20071001
  4. MUCOSTA [Concomitant]
     Indication: GASTRITIS
     Route: 048
     Dates: start: 20091102, end: 20101031
  5. CLONAZEPAM [Concomitant]
     Indication: NEUROPATHY PERIPHERAL
     Route: 048
     Dates: start: 20060414, end: 20101031
  6. PREDNISOLONE [Concomitant]
     Indication: NEUROPATHY PERIPHERAL
     Route: 048
     Dates: start: 20000830, end: 20101031

REACTIONS (1)
  - HEPATIC NEOPLASM MALIGNANT [None]
